FAERS Safety Report 23608879 (Version 1)
Quarter: 2024Q1

REPORT INFORMATION
  Report Type: Spontaneous
  Country: GB (occurrence: GB)
  Receive Date: 20240308
  Receipt Date: 20240308
  Transmission Date: 20240410
  Serious: Yes (Other)
  Sender: FDA-Public Use
  Company Number: None

PATIENT
  Age: 75 Year
  Sex: Female
  Weight: 70 kg

DRUGS (20)
  1. DOXAZOSIN [Suspect]
     Active Substance: DOXAZOSIN MESYLATE
     Dosage: TAKE ONE DAILY FOR A WEEK, IF TOLERATED INCREAS...
     Route: 065
     Dates: start: 20240220
  2. ALBUTEROL [Concomitant]
     Active Substance: ALBUTEROL
     Dosage: 2-5 PUFFS FOUR TIMES A DAY OR WHEN NEEDED
     Dates: start: 20230613
  3. MOMETASONE [Concomitant]
     Active Substance: MOMETASONE
     Dosage: TWO SPRAYS TO EACH NOSTRIL
     Dates: start: 20221213
  4. BUTYLSCOPOLAMINE BROMIDE [Concomitant]
     Active Substance: BUTYLSCOPOLAMINE BROMIDE
     Dosage: TIME INTERVAL: 0.33333333 DAYS: ONE THREE TIME DAILY
     Dates: start: 20230613
  5. FLUOXETINE [Concomitant]
     Active Substance: FLUOXETINE HYDROCHLORIDE
     Dosage: TAKE 40MG DAILY
     Dates: start: 20230613
  6. BISOPROLOL [Concomitant]
     Active Substance: BISOPROLOL\BISOPROLOL FUMARATE
     Dosage: TAKE ONE DAILY
     Dates: start: 20240228
  7. LOSARTAN [Concomitant]
     Active Substance: LOSARTAN
     Dosage: TAKE ONE DAILY
     Dates: start: 20240202
  8. NITROFURANTOIN [Concomitant]
     Active Substance: NITROFURANTOIN
     Dosage: TAKE ONE TWICE DAILY, DURATION: 7 DAYS
     Dates: start: 20240123, end: 20240130
  9. ATORVASTATIN [Concomitant]
     Active Substance: ATORVASTATIN
     Dosage: TAKE ONE DAILY
     Dates: start: 20240202
  10. SUMATRIPTAN [Concomitant]
     Active Substance: SUMATRIPTAN
     Dosage: TAKE ONE TABLET FOR MIGRAINE ATTACK. IF SYMPTOM...
     Dates: start: 20230817
  11. CHLORHEXIDINE GLUCONATE [Concomitant]
     Active Substance: CHLORHEXIDINE GLUCONATE
     Dosage: 10ML RINSE FOR 60 SECONDS, USE TWICE DAILY
     Dates: start: 20221213
  12. CALCIUM CARBONATE\SODIUM ALGINATE\SODIUM BICARBONATE [Concomitant]
     Active Substance: CALCIUM CARBONATE\SODIUM ALGINATE\SODIUM BICARBONATE
     Dosage: 2X5ML SPOON 4 TIMES/DAY
     Dates: start: 20230613
  13. CODEINE PHOSPHATE [Concomitant]
     Active Substance: CODEINE PHOSPHATE
     Dosage: TAKE ONE TABLET UP TO 4 TIMES/DAY WHEN NEEDED F..., DURATION: 7 DAYS
     Dates: start: 20231211, end: 20231218
  14. MACROGOL COMPOUND [Concomitant]
     Dosage: USE AS DIRECTED, DURATION: 30 DAYS
     Dates: start: 20231215, end: 20240114
  15. RAMIPRIL [Concomitant]
     Active Substance: RAMIPRIL
     Dosage: TAKE ONE DAILY
     Dates: start: 20240123
  16. GABAPENTIN [Concomitant]
     Active Substance: GABAPENTIN
     Dosage: TAKE ONE AT NIGHT,
     Dates: start: 20240108
  17. PROMETHAZINE HYDROCHLORIDE [Concomitant]
     Active Substance: PROMETHAZINE HYDROCHLORIDE
     Dosage: 1X5ML SPOON AT 9AM AND 5PM
     Dates: start: 20230124
  18. OMEPRAZOLE [Concomitant]
     Active Substance: OMEPRAZOLE
     Dosage: TAKE ONE TWICE DAILY
     Dates: start: 20230613
  19. IBUPROFEN [Concomitant]
     Active Substance: IBUPROFEN
     Dosage: APPLY 3-4 TIMES/DAY
     Dates: start: 20230927
  20. BECLOMETHASONE DIPROPIONATE\FORMOTEROL FUMARATE\GLYCOPYRROLATE [Concomitant]
     Active Substance: BECLOMETHASONE DIPROPIONATE\FORMOTEROL FUMARATE\GLYCOPYRROLATE
     Dosage: TWO PUFFS TWICE DAILY
     Dates: start: 20230613

REACTIONS (2)
  - Urge incontinence [Recovering/Resolving]
  - Cystitis [Unknown]
